FAERS Safety Report 8615963-8 (Version None)
Quarter: 2012Q3

REPORT INFORMATION
  Report Type: 
  Country: None (occurrence: None)
  Receive Date: 20120823
  Receipt Date: 20120810
  Transmission Date: 20120928
  Serious: Yes (Hospitalization, Other)
  Sender: FDA-Public Use
  Company Number: JP-ROCHE-1051793

PATIENT
  Sex: Female

DRUGS (10)
  1. MIRCERA [Suspect]
     Indication: NEPHROGENIC ANAEMIA
     Route: 058
     Dates: start: 20120303, end: 20120303
  2. TORSEMIDE [Concomitant]
     Indication: RENAL FAILURE
     Route: 048
  3. ALLOPURINOL [Suspect]
     Indication: HYPERURICAEMIA
     Route: 048
     Dates: start: 20120204, end: 20120302
  4. JUVELA [Concomitant]
     Indication: PERIPHERAL VASCULAR DISORDER
     Route: 048
     Dates: end: 20120301
  5. DIOVAN [Concomitant]
     Indication: HYPERTENSION
     Route: 048
     Dates: end: 20110301
  6. LASIX [Concomitant]
     Indication: RENAL FAILURE
     Route: 048
  7. NESPO [Suspect]
     Indication: NEPHROGENIC ANAEMIA
     Dosage: DOSAGE IS UNCERTAIN.
     Route: 042
     Dates: start: 20111001, end: 20120101
  8. DANAZOL [Suspect]
     Indication: APLASTIC ANAEMIA
     Route: 048
     Dates: end: 20120301
  9. ADALAT CC [Concomitant]
     Indication: HYPERTENSION
     Route: 048
     Dates: end: 20120301
  10. PRIMOBOLAN-DEPOT INJ [Concomitant]
     Route: 065

REACTIONS (5)
  - PLATELET COUNT DECREASED [None]
  - HAEMOGLOBIN DECREASED [None]
  - PURPURA [None]
  - WHITE BLOOD CELL COUNT DECREASED [None]
  - LIP HAEMORRHAGE [None]
